FAERS Safety Report 9238801 (Version 1)
Quarter: 2013Q1

REPORT INFORMATION
  Report Type: Spontaneous
  Country: US (occurrence: None)
  Receive Date: 20121101
  Receipt Date: 20121101
  Transmission Date: 20140127
  Serious: Yes (Other)
  Sender: FDA-Public Use
  Company Number: 330118USA

PATIENT
  Sex: Male

DRUGS (2)
  1. XEOMIN [Suspect]
     Indication: TORTICOLLIS
  2. MERCAPTOPURINE [Concomitant]

REACTIONS (1)
  - Drug ineffective [None]
